FAERS Safety Report 17917040 (Version 4)
Quarter: 2020Q3

REPORT INFORMATION
  Report Type: Spontaneous
  Country: US (occurrence: US)
  Receive Date: 20200619
  Receipt Date: 20200930
  Transmission Date: 20201103
  Serious: Yes (Other)
  Sender: FDA-Public Use
  Company Number: US-GILEAD-2020-0474006

PATIENT
  Age: 52 Year
  Sex: Male
  Weight: 79.37 kg

DRUGS (48)
  1. LOVENOX [Concomitant]
     Active Substance: ENOXAPARIN SODIUM
  2. PREDNISONE. [Concomitant]
     Active Substance: PREDNISONE
  3. RANITIDINE. [Concomitant]
     Active Substance: RANITIDINE
  4. TRIAMCINOLONE [Concomitant]
     Active Substance: TRIAMCINOLONE
  5. XANAX [Concomitant]
     Active Substance: ALPRAZOLAM
  6. VIROPTIC [Concomitant]
     Active Substance: TRIFLURIDINE
  7. BACTRIM [Concomitant]
     Active Substance: SULFAMETHOXAZOLE\TRIMETHOPRIM
  8. FAMOTIDINE. [Concomitant]
     Active Substance: FAMOTIDINE
  9. METHYLPREDNISOLONE. [Concomitant]
     Active Substance: METHYLPREDNISOLONE
  10. OMEPRAZOLE. [Concomitant]
     Active Substance: OMEPRAZOLE
  11. TETRACYCLINE [Concomitant]
     Active Substance: TETRACYCLINE
  12. VALTREX [Concomitant]
     Active Substance: VALACYCLOVIR HYDROCHLORIDE
  13. VIDARABINE [Concomitant]
     Active Substance: VIDARABINE
  14. HYDROCODONE [Concomitant]
     Active Substance: HYDROCODONE
  15. AMITRIPTYLINE [Concomitant]
     Active Substance: AMITRIPTYLINE
  16. ASPIRIN [ACETYLSALICYLIC ACID] [Concomitant]
     Active Substance: ASPIRIN
  17. CIMETIDINE [Concomitant]
     Active Substance: CIMETIDINE
  18. VANCOMYCIN [Concomitant]
     Active Substance: VANCOMYCIN
  19. VIRACEPT [Concomitant]
     Active Substance: NELFINAVIR MESYLATE
  20. ROBAXIN [Concomitant]
     Active Substance: METHOCARBAMOL
  21. CEPHALEX [CEFALEXIN] [Concomitant]
  22. AVELOX [Concomitant]
     Active Substance: MOXIFLOXACIN HYDROCHLORIDE
  23. ZOFRAN [Concomitant]
     Active Substance: ONDANSETRON HYDROCHLORIDE
  24. DIPHENOXYLATE HYDROCHLORIDE AND ATROPINE SULFATE [Concomitant]
     Active Substance: ATROPINE SULFATE\DIPHENOXYLATE HYDROCHLORIDE
  25. ACETAMINOPHEN. [Concomitant]
     Active Substance: ACETAMINOPHEN
  26. IMITREX [Concomitant]
     Active Substance: SUMATRIPTAN SUCCINATE
  27. HEPARIN [Concomitant]
     Active Substance: HEPARIN SODIUM
  28. PANTOPRAZOLE [Concomitant]
     Active Substance: PANTOPRAZOLE
  29. PRAVASTATIN. [Concomitant]
     Active Substance: PRAVASTATIN
  30. VIDEX [Concomitant]
     Active Substance: DIDANOSINE
  31. NEUROTIN [GABAPENTIN] [Concomitant]
  32. NARATRIPTAN [Concomitant]
     Active Substance: NARATRIPTAN HYDROCHLORIDE
  33. AVIDOXY [Concomitant]
  34. ACYCLOVIR [ACICLOVIR] [Concomitant]
     Active Substance: ACYCLOVIR
  35. CORTISONE [Concomitant]
     Active Substance: CORTISONE
  36. LASIX [Concomitant]
     Active Substance: FUROSEMIDE
  37. WARFARIN [Concomitant]
     Active Substance: WARFARIN
  38. CRIXIVAN [Concomitant]
     Active Substance: INDINAVIR SULFATE
  39. AMOXICILLIN. [Concomitant]
     Active Substance: AMOXICILLIN
  40. CIPROFLOXACIN. [Concomitant]
     Active Substance: CIPROFLOXACIN
  41. VIREAD [Suspect]
     Active Substance: TENOFOVIR DISOPROXIL FUMARATE
     Indication: HIV INFECTION
     Dosage: UNK
     Route: 048
     Dates: start: 20040127, end: 20081016
  42. AMPICILLIN [Concomitant]
     Active Substance: AMPICILLIN
  43. DEXAMETHASONE. [Concomitant]
     Active Substance: DEXAMETHASONE
  44. GANCICLOVIR. [Concomitant]
     Active Substance: GANCICLOVIR
  45. NORCO [Concomitant]
     Active Substance: ACETAMINOPHEN\HYDROCODONE BITARTRATE
  46. ROCEPHIN [Concomitant]
     Active Substance: CEFTRIAXONE SODIUM
  47. VANTIN [SALBUTAMOL SULFATE] [Concomitant]
  48. PRILOSEC [Concomitant]
     Active Substance: OMEPRAZOLE MAGNESIUM

REACTIONS (10)
  - Osteopenia [Not Recovered/Not Resolved]
  - Chronic kidney disease [Not Recovered/Not Resolved]
  - Bone density decreased [Unknown]
  - Hypophosphataemia [Unknown]
  - Emotional distress [Not Recovered/Not Resolved]
  - Pain [Not Recovered/Not Resolved]
  - Depression [Not Recovered/Not Resolved]
  - Anxiety [Not Recovered/Not Resolved]
  - Vitamin D deficiency [Unknown]
  - Fanconi syndrome acquired [Not Recovered/Not Resolved]

NARRATIVE: CASE EVENT DATE: 20060823
